FAERS Safety Report 13487360 (Version 1)
Quarter: 2017Q2

REPORT INFORMATION
  Report Type: Spontaneous
  Country: IN (occurrence: IN)
  Receive Date: 20170426
  Receipt Date: 20170426
  Transmission Date: 20170830
  Serious: Yes (Other)
  Sender: FDA-Public Use
  Company Number: IN-BAUSCH-BL-2017-011155

PATIENT
  Age: 55 Year
  Sex: Female

DRUGS (1)
  1. ALL-TRANS RETINOIC ACID [Suspect]
     Active Substance: TRETINOIN
     Indication: PLASMA CELL MYELOMA
     Route: 065

REACTIONS (1)
  - Gelatinous transformation of the bone marrow [Unknown]
